FAERS Safety Report 12851174 (Version 2)
Quarter: 2016Q4

REPORT INFORMATION
  Report Type: Report from Study
  Country: KR (occurrence: KR)
  Receive Date: 20161015
  Receipt Date: 20161021
  Transmission Date: 20170207
  Serious: Yes (Hospitalization)
  Sender: FDA-Public Use
  Company Number: KR-B.I. PHARMACEUTICALS,INC./RIDGEFIELD-2016-BI-065538

PATIENT
  Age: 74 Year
  Sex: Female
  Weight: 51.9 kg

DRUGS (15)
  1. LYRICA [Concomitant]
     Active Substance: PREGABALIN
     Indication: POLYNEUROPATHY
     Route: 048
     Dates: start: 20101220
  2. TRAJENTA [Suspect]
     Active Substance: LINAGLIPTIN
     Indication: TYPE 2 DIABETES MELLITUS
     Route: 048
     Dates: start: 20160518
  3. ATORVA [Concomitant]
     Indication: HYPERLIPIDAEMIA
     Route: 048
     Dates: start: 20160829
  4. MUCOSTA [Concomitant]
     Active Substance: REBAMIPIDE
     Indication: CHRONIC GASTRITIS
     Route: 048
     Dates: start: 20131023
  5. VESSEL DUE F [Concomitant]
     Active Substance: SULODEXIDE
     Indication: AORTIC VALVE STENOSIS
     Route: 048
     Dates: start: 20160401
  6. TORSEM [Concomitant]
     Indication: CARDIAC FAILURE
     Route: 048
     Dates: start: 20130402
  7. LEVEMIR [Concomitant]
     Active Substance: INSULIN DETEMIR
     Route: 058
     Dates: start: 20160817
  8. CRAVIT [Concomitant]
     Active Substance: LEVOFLOXACIN
     Indication: LACRIMATION INCREASED
     Dosage: DAILY DOSE: 1 DROP
     Route: 031
     Dates: start: 20160325
  9. WARFARIN [Concomitant]
     Active Substance: WARFARIN
     Indication: AORTIC VALVE STENOSIS
     Route: 048
     Dates: start: 20160721
  10. THIOCTACID [Concomitant]
     Active Substance: THIOCTIC ACID
     Indication: POLYNEUROPATHY
     Route: 042
     Dates: start: 20160825, end: 20160828
  11. DEXID [Concomitant]
     Indication: POLYNEUROPATHY
     Route: 048
     Dates: start: 20160518, end: 20160824
  12. BRONUCK [Concomitant]
     Active Substance: BROMFENAC SODIUM
     Indication: CATARACT
     Dosage: DAILY DOSE: 1 DROP
     Route: 031
     Dates: start: 20160530
  13. KARY-UNI [Concomitant]
     Indication: CATARACT
     Dosage: TOTAL DAILY DOSE: 1 DROP
     Route: 031
     Dates: start: 20160325
  14. DIABEX [Concomitant]
     Active Substance: METFORMIN HYDROCHLORIDE
     Indication: TYPE 2 DIABETES MELLITUS
     Route: 048
     Dates: start: 20050106
  15. LEVEMIR [Concomitant]
     Active Substance: INSULIN DETEMIR
     Indication: TYPE 2 DIABETES MELLITUS
     Route: 058
     Dates: start: 20151207, end: 20160816

REACTIONS (1)
  - Hyperglycaemia [Recovered/Resolved]

NARRATIVE: CASE EVENT DATE: 201608
